FAERS Safety Report 4774400-4 (Version None)
Quarter: 2005Q3

REPORT INFORMATION
  Report Type: 
  Country: None (occurrence: None)
  Receive Date: 20050919
  Receipt Date: 20050919
  Transmission Date: 20060218
  Serious: No
  Sender: FDA-Public Use
  Company Number: None

PATIENT
  Age: 40 Year
  Sex: Female

DRUGS (3)
  1. VANCOMYCIN [Suspect]
     Indication: CARDIAC OPERATION
     Dosage: 1G INITIAL + DAY 3 IV
     Route: 042
     Dates: start: 20050815, end: 20050817
  2. VANCOMYCIN [Suspect]
     Indication: POSTOPERATIVE INFECTION
     Dosage: 1G INITIAL + DAY 3 IV
     Route: 042
     Dates: start: 20050815, end: 20050817
  3. VANCOMYCIN [Suspect]
     Dosage: 500MG DAY 2 IV
     Route: 042
     Dates: start: 20050816, end: 20050816

REACTIONS (1)
  - DEAFNESS TRANSITORY [None]
